FAERS Safety Report 24168308 (Version 1)
Quarter: 2024Q3

REPORT INFORMATION
  Report Type: Report from Study
  Country: BR (occurrence: BR)
  Receive Date: 20240802
  Receipt Date: 20240802
  Transmission Date: 20241016
  Serious: Yes (Other)
  Sender: JOHNSON AND JOHNSON
  Company Number: BR-JNJFOC-20240777801

PATIENT
  Age: 71 Year
  Sex: Female

DRUGS (4)
  1. SIMPONI [Suspect]
     Active Substance: GOLIMUMAB
     Indication: Rheumatoid arthritis
     Route: 058
  2. SIMPONI [Suspect]
     Active Substance: GOLIMUMAB
  3. LEFLUNOMIDE [Suspect]
     Active Substance: LEFLUNOMIDE
     Indication: Arthritis
  4. ISONIAZID [Concomitant]
     Active Substance: ISONIAZID

REACTIONS (10)
  - Diverticulitis [Unknown]
  - Gastrointestinal perforation [Unknown]
  - Pain [Unknown]
  - Joint swelling [Unknown]
  - Peripheral swelling [Unknown]
  - Cough [Unknown]
  - Blood pressure fluctuation [Unknown]
  - Chest discomfort [Recovering/Resolving]
  - Flatulence [Recovered/Resolved]
  - Tuberculin test positive [Unknown]

NARRATIVE: CASE EVENT DATE: 20240701
